FAERS Safety Report 10073682 (Version 1)
Quarter: 2014Q2

REPORT INFORMATION
  Report Type: Spontaneous
  Country: US (occurrence: US)
  Receive Date: 20140411
  Receipt Date: 20140411
  Transmission Date: 20141212
  Serious: No
  Sender: FDA-Public Use
  Company Number: US-TEVA-475113USA

PATIENT
  Age: 58 Year
  Sex: Male
  Weight: 99.88 kg

DRUGS (2)
  1. FENTORA [Suspect]
     Indication: PAIN
     Route: 002
  2. FENTANYL [Concomitant]
     Indication: PAIN
     Route: 062

REACTIONS (2)
  - Pain [Not Recovered/Not Resolved]
  - Off label use [Not Recovered/Not Resolved]
